FAERS Safety Report 6614121-6 (Version None)
Quarter: 2010Q1

REPORT INFORMATION
  Report Type: 
  Country: None (occurrence: None)
  Receive Date: 20100304
  Receipt Date: 20100224
  Transmission Date: 20100710
  Serious: Yes (Hospitalization, Other)
  Sender: FDA-Public Use
  Company Number: US-JNJFOC-20100210994

PATIENT
  Sex: Female
  Weight: 63.5 kg

DRUGS (16)
  1. TOPAMAX [Suspect]
     Indication: DRUG USE FOR UNKNOWN INDICATION
     Route: 048
  2. TRAMADOL HCL [Suspect]
     Indication: DRUG USE FOR UNKNOWN INDICATION
     Route: 065
  3. NAPROXEN [Suspect]
     Indication: DRUG USE FOR UNKNOWN INDICATION
     Route: 065
  4. CHANTIX [Suspect]
     Indication: SMOKING CESSATION THERAPY
     Route: 065
  5. GABAPENTIN [Suspect]
     Indication: DRUG USE FOR UNKNOWN INDICATION
     Route: 065
  6. EFFEXOR XR [Concomitant]
     Route: 065
  7. LISINOPRIL [Concomitant]
     Route: 065
  8. LAMOTRIGINE [Concomitant]
     Route: 065
  9. CLONAZEPAM [Concomitant]
     Route: 065
  10. NAPROXEN SODIUM [Concomitant]
     Route: 065
  11. GLUCOSAMINE W;CHONDROITIN SULFATES [Concomitant]
     Route: 065
  12. METFORMIN HYDROCHLORIDE [Concomitant]
     Route: 065
  13. SIMVASTATIN [Concomitant]
     Route: 065
  14. ZOLPIDEM TARTRATE [Concomitant]
     Route: 065
  15. AMITRIPTYLINE HYDROCHLORIDE [Concomitant]
     Route: 065
  16. IBUPROFEN [Concomitant]
     Route: 065

REACTIONS (4)
  - BACK DISORDER [None]
  - COGNITIVE DISORDER [None]
  - FALL [None]
  - LOSS OF CONSCIOUSNESS [None]
